FAERS Safety Report 18639333 (Version 1)
Quarter: 2020Q4

REPORT INFORMATION
  Report Type: Report from Study
  Country: US (occurrence: US)
  Receive Date: 20201219
  Receipt Date: 20201219
  Transmission Date: 20210114
  Serious: Yes (Hospitalization)
  Sender: FDA-Public Use
  Company Number: NVSC2020US332395

PATIENT
  Sex: Male

DRUGS (1)
  1. ENTRESTO [Suspect]
     Active Substance: SACUBITRIL\VALSARTAN
     Indication: PRODUCT USED FOR UNKNOWN INDICATION
     Dosage: UNK, BID (24/26 OF UNKNOWN UNITS)
     Route: 048
     Dates: start: 202011

REACTIONS (2)
  - SARS-CoV-2 test positive [Unknown]
  - Respiratory disorder [Not Recovered/Not Resolved]
